FAERS Safety Report 5877868-5 (Version None)
Quarter: 2008Q3

REPORT INFORMATION
  Report Type: 
  Country: None (occurrence: None)
  Receive Date: 20080911
  Receipt Date: 20080901
  Transmission Date: 20090109
  Serious: Yes (Hospitalization)
  Sender: FDA-Public Use
  Company Number: IN-AMGEN-UK298515

PATIENT
  Sex: Male

DRUGS (11)
  1. PANITUMUMAB [Suspect]
     Indication: SQUAMOUS CELL CARCINOMA
     Route: 042
     Dates: start: 20080709
  2. CISPLATIN [Suspect]
     Dates: start: 20080709
  3. MAGNESIUM SULFATE [Concomitant]
     Route: 042
     Dates: start: 20080709
  4. RANITIDINE [Concomitant]
     Route: 042
     Dates: start: 20080709
  5. ONDANSETRON [Concomitant]
     Route: 042
     Dates: start: 20080709
  6. ONDANSETRON [Concomitant]
     Route: 042
     Dates: start: 20080709, end: 20080713
  7. DEXAMETHASONE [Concomitant]
     Route: 042
     Dates: start: 20080709
  8. MANNITOL [Concomitant]
     Route: 042
  9. POTASSIUM CHLORIDE [Concomitant]
     Route: 042
     Dates: start: 20080709
  10. DICLOFENAC/PARACETAMOL [Concomitant]
     Route: 048
     Dates: start: 20080708, end: 20080719
  11. PANTOP [Concomitant]
     Route: 048
     Dates: start: 20080708, end: 20080719

REACTIONS (3)
  - FULL BLOOD COUNT DECREASED [None]
  - NEUTROPENIA [None]
  - THROMBOCYTOPENIA [None]
